FAERS Safety Report 23528815 (Version 1)
Quarter: 2024Q1

REPORT INFORMATION
  Report Type: Report from Study
  Country: US (occurrence: US)
  Receive Date: 20240215
  Receipt Date: 20240215
  Transmission Date: 20240410
  Serious: Yes (Other)
  Sender: FDA-Public Use
  Company Number: US-ABBVIE-5637333

PATIENT
  Age: 78 Year
  Sex: Male

DRUGS (1)
  1. LUPRON [Suspect]
     Active Substance: LEUPROLIDE ACETATE
     Indication: Product used for unknown indication
     Route: 065
     Dates: start: 20150501

REACTIONS (2)
  - Squamous cell carcinoma of skin [Recovering/Resolving]
  - Hypoacusis [Unknown]

NARRATIVE: CASE EVENT DATE: 20231201
